FAERS Safety Report 11723142 (Version 1)
Quarter: 2015Q4

REPORT INFORMATION
  Report Type: Spontaneous
  Country: GB (occurrence: None)
  Receive Date: 20151110
  Receipt Date: 20151110
  Transmission Date: 20160304
  Serious: Yes (Other)
  Sender: FDA-Public Use
  Company Number: None

PATIENT
  Age: 62 Year
  Sex: Female
  Weight: 54.43 kg

DRUGS (1)
  1. SIMBRINZA [Suspect]
     Active Substance: BRIMONIDINE TARTRATE\BRINZOLAMIDE
     Indication: INTRAOCULAR PRESSURE INCREASED
     Dosage: B.D.  TWICE DAILY  INTO THE EYE
     Dates: start: 20150102, end: 20150924

REACTIONS (4)
  - Conjunctivitis [None]
  - Dizziness [None]
  - Somnolence [None]
  - Limb discomfort [None]

NARRATIVE: CASE EVENT DATE: 20151001
